FAERS Safety Report 9433390 (Version 2)
Quarter: 2014Q1

REPORT INFORMATION
  Report Type: Spontaneous
  Country: US (occurrence: US)
  Receive Date: 20130731
  Receipt Date: 20140106
  Transmission Date: 20141002
  Serious: Yes (Death, Hospitalization)
  Sender: FDA-Public Use
  Company Number: US-B.I. PHARMACEUTICALS,INC./RIDGEFIELD-2013-BI-22581BP

PATIENT
  Age: 91 Year
  Sex: Female
  Weight: 49.9 kg

DRUGS (6)
  1. PRADAXA [Suspect]
     Indication: ATRIAL FIBRILLATION
     Dosage: 300 MG
     Route: 048
     Dates: start: 20110113, end: 20120317
  2. LISINOPRIL [Concomitant]
     Dosage: 10 MG
     Route: 048
  3. INDERAL [Concomitant]
     Dosage: 80 MG
     Route: 048
  4. DIGOXIN [Concomitant]
     Dosage: 0.125 MG
     Route: 048
  5. MIRALAX [Concomitant]
     Route: 048
  6. PERCOCET [Concomitant]
     Route: 048

REACTIONS (6)
  - Cerebrovascular accident [Fatal]
  - Epistaxis [Unknown]
  - Haemorrhagic anaemia [Unknown]
  - Coagulopathy [Unknown]
  - Fall [Unknown]
  - Ecchymosis [Unknown]
